FAERS Safety Report 4397833-7 (Version None)
Quarter: 2004Q2

REPORT INFORMATION
  Report Type: 
  Country: None (occurrence: None)
  Receive Date: 20040621
  Receipt Date: 20040322
  Transmission Date: 20050107
  Serious: Yes (Death, Other)
  Sender: FDA-Public Use
  Company Number: USA-2004-0014027

PATIENT
  Age: 21 Year
  Sex: Male
  Weight: 113.4 kg

DRUGS (5)
  1. OXYCONTIN [Suspect]
  2. OXYMORPHONE HYDROCHLORIDE [Suspect]
  3. XANAX [Suspect]
  4. CANNABIS (CANNABIS) [Suspect]
  5. NEXIUM [Concomitant]

REACTIONS (2)
  - DRUG ABUSER [None]
  - OVERDOSE [None]
